FAERS Safety Report 4962058-0 (Version None)
Quarter: 2006Q2

REPORT INFORMATION
  Report Type: 
  Country: None (occurrence: None)
  Receive Date: 20060404
  Receipt Date: 20050404
  Transmission Date: 20061013
  Serious: Yes (Other)
  Sender: FDA-Public Use
  Company Number: US-MERCK-0504USA00700

PATIENT
  Age: 49 Year
  Sex: Male
  Weight: 109 kg

DRUGS (5)
  1. VIOXX [Suspect]
     Indication: BACK PAIN
     Route: 048
  2. TYLENOL (CAPLET) [Concomitant]
     Route: 065
  3. VIOXX [Suspect]
     Route: 048
     Dates: end: 20031001
  4. VIOXX [Suspect]
     Route: 048
  5. VIOXX [Suspect]
     Route: 048

REACTIONS (3)
  - MYOCARDIAL INFARCTION [None]
  - PRESCRIBED OVERDOSE [None]
  - THROMBOSIS [None]
